FAERS Safety Report 8247036 (Version 3)
Quarter: 2013Q4

REPORT INFORMATION
  Report Type: Spontaneous
  Country: SE (occurrence: None)
  Receive Date: 20111110
  Receipt Date: 20131001
  Transmission Date: 20140711
  Serious: Yes (Death, Hospitalization)
  Sender: FDA-Public Use
  Company Number: 2011CP000179

PATIENT
  Age: 65 Year
  Sex: Male

DRUGS (12)
  1. PERFALGAN [Suspect]
     Indication: PROPHYLAXIS
     Dosage: 300 ML; QD; IV
     Route: 042
     Dates: start: 20041209, end: 20041214
  2. SEVOFLURANE [Suspect]
     Dosage: INH
     Route: 055
     Dates: start: 20041214, end: 200412
  3. ACETAMINOPHEN [Suspect]
     Dosage: 40 MG
     Dates: start: 20041211, end: 20041214
  4. FRAGMIN [Concomitant]
  5. PROPOFOL [Concomitant]
  6. CLOXACILLIN SODIUM [Concomitant]
  7. BETAPRED [Concomitant]
  8. SOLU-CORTEF [Concomitant]
  9. MORPHINE [Concomitant]
  10. KETOGAN NOVUM [Concomitant]
  11. TRAMADOL HYDROCHLORIDE [Concomitant]
  12. FENTANYL [Concomitant]

REACTIONS (11)
  - Hepatic failure [None]
  - Renal failure acute [None]
  - Acute respiratory distress syndrome [None]
  - Circulatory collapse [None]
  - Hypotension [None]
  - Rhabdomyolysis [None]
  - Pneumonia [None]
  - Sepsis [None]
  - Coagulopathy [None]
  - Dialysis [None]
  - Toxicity to various agents [None]
